APPROVED DRUG PRODUCT: POTASSIUM CITRATE
Active Ingredient: POTASSIUM CITRATE
Strength: 15MEQ
Dosage Form/Route: TABLET, EXTENDED RELEASE;ORAL
Application: A206813 | Product #003 | TE Code: AB
Applicant: STRIDES PHARMA GLOBAL PTE LTD
Approved: Sep 11, 2017 | RLD: No | RS: No | Type: RX